FAERS Safety Report 5839151-3 (Version None)
Quarter: 2008Q3

REPORT INFORMATION
  Report Type: 
  Country: None (occurrence: None)
  Receive Date: 20080808
  Receipt Date: 20080729
  Transmission Date: 20090109
  Serious: Yes (Other)
  Sender: FDA-Public Use
  Company Number: JP-PFIZER INC-2008050357

PATIENT
  Sex: Male

DRUGS (3)
  1. CARDENALIN [Suspect]
     Indication: RAYNAUD'S PHENOMENON
     Route: 048
     Dates: start: 20080516, end: 20080528
  2. KETAS [Concomitant]
     Route: 048
     Dates: start: 20000101, end: 20080613
  3. AMARYL [Concomitant]
     Route: 048

REACTIONS (10)
  - GAIT DISTURBANCE [None]
  - HYPERHIDROSIS [None]
  - LACRIMATION INCREASED [None]
  - MUSCULAR WEAKNESS [None]
  - PALLOR [None]
  - PERIPHERAL COLDNESS [None]
  - POLLAKIURIA [None]
  - PRURITUS [None]
  - URINARY INCONTINENCE [None]
  - VISUAL ACUITY REDUCED [None]
